FAERS Safety Report 5013716-3 (Version None)
Quarter: 2006Q2

REPORT INFORMATION
  Report Type: 
  Country: None (occurrence: None)
  Receive Date: 20060530
  Receipt Date: 20060424
  Transmission Date: 20061013
  Serious: Yes (Other)
  Sender: FDA-Public Use
  Company Number: US-GLAXOSMITHKLINE-A0603010A

PATIENT
  Age: 53 Year
  Sex: Female

DRUGS (1)
  1. ARRANON [Suspect]
     Dosage: 1500MGM2 VARIABLE DOSE
     Route: 042
     Dates: start: 20060327

REACTIONS (1)
  - NEUTROPENIA [None]
